FAERS Safety Report 15575713 (Version 1)
Quarter: 2018Q4

REPORT INFORMATION
  Report Type: Spontaneous
  Country: US (occurrence: US)
  Receive Date: 20181101
  Receipt Date: 20181101
  Transmission Date: 20190205
  Serious: No
  Sender: FDA-Public Use
  Company Number: US-TEVA-2018-US-968213

PATIENT
  Sex: Female

DRUGS (2)
  1. ACTAVIS CLONAZEPAM [Suspect]
     Active Substance: CLONAZEPAM
     Indication: ANXIETY
     Route: 065
  2. ACTAVIS CLONAZEPAM [Suspect]
     Active Substance: CLONAZEPAM
     Indication: PANIC ATTACK

REACTIONS (5)
  - Insomnia [Unknown]
  - Drug effect decreased [Unknown]
  - Dry mouth [Unknown]
  - Dysgeusia [Unknown]
  - Product substitution issue [Unknown]

NARRATIVE: CASE EVENT DATE: 201808
